FAERS Safety Report 5941554-3 (Version None)
Quarter: 2008Q4

REPORT INFORMATION
  Report Type: 
  Country: None (occurrence: None)
  Receive Date: 20081105
  Receipt Date: 20081029
  Transmission Date: 20090506
  Serious: Yes (Other)
  Sender: FDA-Public Use
  Company Number: IL-NOVOPROD-273949

PATIENT
  Sex: Male
  Weight: 73 kg

DRUGS (7)
  1. AERX SOLUTION 2.6 MG/STRIP [Suspect]
     Indication: INSULIN-REQUIRING TYPE 2 DIABETES MELLITUS
     Dosage: 95 IU, QD
     Route: 055
     Dates: start: 20070615, end: 20080221
  2. INSULIN DETEMIR FLEXPEN [Suspect]
     Indication: INSULIN-REQUIRING TYPE 2 DIABETES MELLITUS
     Dosage: 40 IU, QD
     Route: 058
     Dates: start: 20070615, end: 20080221
  3. BRIMONIDINE TARTRATE [Concomitant]
     Dosage: 2 DROPS
     Route: 057
     Dates: start: 20060101
  4. TIMOLOL [Concomitant]
     Dosage: 2 DROPS
     Route: 057
     Dates: start: 20060101
  5. LATANOPROST [Concomitant]
     Dosage: 2 DROPS
     Route: 057
     Dates: start: 20060101
  6. SIMVASTATIN [Concomitant]
     Dosage: 40 MG, QD
     Route: 048
     Dates: start: 20070101
  7. ASPIRIN [Concomitant]
     Dosage: 100 MG, QD
     Route: 048
     Dates: start: 20071109

REACTIONS (1)
  - TOTAL LUNG CAPACITY DECREASED [None]
